FAERS Safety Report 20502026 (Version 1)
Quarter: 2022Q1

REPORT INFORMATION
  Report Type: Spontaneous
  Country: US (occurrence: None)
  Receive Date: 20220221
  Receipt Date: 20220221
  Transmission Date: 20220423
  Serious: No
  Sender: FDA-Public Use
  Company Number: None

PATIENT
  Sex: Female

DRUGS (1)
  1. OTEZLA [Suspect]
     Active Substance: APREMILAST
     Indication: Psoriasis
     Dosage: FREQUENCY : TWICE A DAY;?
     Route: 048
     Dates: start: 201802

REACTIONS (6)
  - Drug ineffective [None]
  - Dry skin [None]
  - Pruritus [None]
  - Arthralgia [None]
  - Pain in extremity [None]
  - Condition aggravated [None]
